FAERS Safety Report 14170577 (Version 1)
Quarter: 2017Q4

REPORT INFORMATION
  Report Type: Spontaneous
  Country: NZ (occurrence: NZ)
  Receive Date: 20171108
  Receipt Date: 20171108
  Transmission Date: 20180321
  Serious: Yes (Death, Other)
  Sender: FDA-Public Use
  Company Number: NZ-JNJFOC-20171107098

PATIENT
  Age: 5 Decade
  Sex: Male

DRUGS (1)
  1. REMICADE [Suspect]
     Active Substance: INFLIXIMAB
     Indication: CROHN^S DISEASE
     Route: 042

REACTIONS (3)
  - Myelodysplastic syndrome [Not Recovered/Not Resolved]
  - Acute myeloid leukaemia [Unknown]
  - Death [Fatal]

NARRATIVE: CASE EVENT DATE: 2014
